FAERS Safety Report 7002285-4 (Version None)
Quarter: 2010Q3

REPORT INFORMATION
  Report Type: 
  Country: None (occurrence: None)
  Receive Date: 20100920
  Receipt Date: 20100608
  Transmission Date: 20110219
  Serious: No
  Sender: FDA-Public Use
  Company Number: US-ASTRAZENECA-2010SE26513

PATIENT
  Sex: Female
  Weight: 111.6 kg

DRUGS (13)
  1. SEROQUEL XR [Suspect]
     Indication: FEELING ABNORMAL
     Route: 048
     Dates: start: 20100604
  2. CYMBALTA [Concomitant]
     Indication: DEPRESSION
  3. MORPHINE [Concomitant]
     Indication: PAIN
  4. LYRICA [Concomitant]
     Indication: PAIN
  5. FENTANYL-75 [Concomitant]
     Indication: PAIN
  6. LIDODERM [Concomitant]
     Indication: PAIN
  7. ZETIA [Concomitant]
     Indication: BLOOD CHOLESTEROL
  8. OTHER CHOLESTEROL MEDICATION [Concomitant]
     Indication: BLOOD CHOLESTEROL
  9. PLAVIX [Concomitant]
  10. MEDICATION FOR MUSCLE SPASM [Concomitant]
  11. ASPIRIN [Concomitant]
  12. METFORMIN [Concomitant]
     Indication: DIABETES MELLITUS
  13. ZOLPIDERM [Concomitant]
     Indication: SLEEP DISORDER

REACTIONS (2)
  - IMPAIRED WORK ABILITY [None]
  - SOMNOLENCE [None]
